FAERS Safety Report 11618078 (Version 3)
Quarter: 2015Q4

REPORT INFORMATION
  Report Type: Spontaneous
  Country: US (occurrence: US)
  Receive Date: 20151010
  Receipt Date: 20151204
  Transmission Date: 20160304
  Serious: No
  Sender: FDA-Public Use
  Company Number: PHEH2015US020042

PATIENT
  Age: 60 Year
  Sex: Female

DRUGS (1)
  1. SANDOSTATIN LAR DEPOT [Suspect]
     Active Substance: OCTREOTIDE ACETATE
     Indication: CARCINOID SYNDROME
     Dosage: 30 MG, QW2
     Route: 030

REACTIONS (2)
  - Accidental exposure to product [Recovered/Resolved]
  - Syringe issue [Recovered/Resolved]

NARRATIVE: CASE EVENT DATE: 20150610
